FAERS Safety Report 10843636 (Version 3)
Quarter: 2015Q2

REPORT INFORMATION
  Report Type: Spontaneous
  Country: US (occurrence: US)
  Receive Date: 20150220
  Receipt Date: 20150504
  Transmission Date: 20150821
  Serious: Yes (Other)
  Sender: FDA-Public Use
  Company Number: US-009507513-1502USA007590

PATIENT
  Age: 13 Year
  Sex: Female
  Weight: 75.74 kg

DRUGS (2)
  1. NEXPLANON [Suspect]
     Active Substance: ETONOGESTREL
     Indication: MENSTRUATION IRREGULAR
     Dosage: 1 IMPLANT PER 3 YEARS
     Route: 059
     Dates: start: 20150123, end: 2015
  2. INDERAL [Concomitant]
     Active Substance: PROPRANOLOL HYDROCHLORIDE
     Dosage: 20 MG TWICE DAILY

REACTIONS (5)
  - Yellow skin [Recovered/Resolved]
  - Uterine haemorrhage [Recovered/Resolved]
  - Drug administration error [Unknown]
  - Vaginal haemorrhage [Not Recovered/Not Resolved]
  - Abdominal pain [Recovered/Resolved]

NARRATIVE: CASE EVENT DATE: 2015
